FAERS Safety Report 22212798 (Version 2)
Quarter: 2023Q2

REPORT INFORMATION
  Report Type: Spontaneous
  Country: US (occurrence: US)
  Receive Date: 20230414
  Receipt Date: 20230424
  Transmission Date: 20230721
  Serious: Yes (Other)
  Sender: FDA-Public Use
  Company Number: US-TAKEDA-2023TUS036826

PATIENT
  Sex: Female
  Weight: 77 kg

DRUGS (1)
  1. GAMMAGARD LIQUID [Suspect]
     Active Substance: HUMAN IMMUNOGLOBULIN G
     Indication: Hypergammaglobulinaemia
     Dosage: 32 GRAM, 4/WEEK
     Route: 065

REACTIONS (2)
  - Colitis ischaemic [Unknown]
  - Post procedural complication [Unknown]
